FAERS Safety Report 5818975-2 (Version None)
Quarter: 2008Q3

REPORT INFORMATION
  Report Type: 
  Country: None (occurrence: None)
  Receive Date: 20080723
  Receipt Date: 20080708
  Transmission Date: 20090109
  Serious: Yes (Other)
  Sender: FDA-Public Use
  Company Number: US-BAYER-200812772BCC

PATIENT
  Sex: Male
  Weight: 91 kg

DRUGS (1)
  1. BAYER ASPIRIN GENUINE (ACETYLSALICYCLIC ACID) [Suspect]
     Indication: HEADACHE
     Dates: start: 20080707, end: 20080708

REACTIONS (3)
  - DEAFNESS [None]
  - HYPOACUSIS [None]
  - TINNITUS [None]
